FAERS Safety Report 16330914 (Version 1)
Quarter: 2019Q2

REPORT INFORMATION
  Report Type: Spontaneous
  Country: US (occurrence: US)
  Receive Date: 20190412
  Receipt Date: 20190412
  Transmission Date: 20190711
  Serious: No
  Sender: FDA-Public Use
  Company Number: None

PATIENT
  Sex: Female

DRUGS (2)
  1. HUMIRA [Suspect]
     Active Substance: ADALIMUMAB
     Indication: COLITIS ULCERATIVE
     Route: 058
     Dates: start: 20190318
  2. HUMIRA [Suspect]
     Active Substance: ADALIMUMAB
     Indication: COLITIS
     Route: 058
     Dates: start: 20190318

REACTIONS (1)
  - Injection site mass [None]
